FAERS Safety Report 6195550-4 (Version None)
Quarter: 2009Q2

REPORT INFORMATION
  Report Type: 
  Country: None (occurrence: None)
  Receive Date: 20090519
  Receipt Date: 20090513
  Transmission Date: 20091009
  Serious: Yes (Other)
  Sender: FDA-Public Use
  Company Number: PHHY2009AU14408

PATIENT
  Sex: Male

DRUGS (2)
  1. CYCLOSPORINE [Suspect]
     Indication: PSORIASIS
     Dosage: 100 MG, BID
     Route: 048
     Dates: start: 20000601
  2. GOPTEN [Concomitant]
     Dosage: 2 MG, QD
     Dates: start: 20030303

REACTIONS (1)
  - NEUROPATHY PERIPHERAL [None]
